FAERS Safety Report 17131956 (Version 1)
Quarter: 2019Q4

REPORT INFORMATION
  Report Type: Spontaneous
  Country: US (occurrence: US)
  Receive Date: 20191209
  Receipt Date: 20191209
  Transmission Date: 20200122
  Serious: No
  Sender: FDA-Public Use
  Company Number: US-UCBSA-2016047956

PATIENT
  Age: 63 Year
  Sex: Female
  Weight: 68 kg

DRUGS (1)
  1. CIMZIA [Suspect]
     Active Substance: CERTOLIZUMAB PEGOL
     Indication: RHEUMATOID ARTHRITIS
     Dosage: 400 MG, MONTHLY (QM)
     Route: 058
     Dates: start: 20161115

REACTIONS (3)
  - Drug ineffective [Unknown]
  - Injection site discolouration [Unknown]
  - Tachycardia [Unknown]

NARRATIVE: CASE EVENT DATE: 20161204
